FAERS Safety Report 8695077 (Version 2)
Quarter: 2013Q4

REPORT INFORMATION
  Report Type: Spontaneous
  Country: US (occurrence: US)
  Receive Date: 20120731
  Receipt Date: 20131031
  Transmission Date: 20140711
  Serious: No
  Sender: FDA-Public Use
  Company Number: US-009507513-2012SP030593

PATIENT
  Age: 14 Year
  Sex: Female

DRUGS (4)
  1. INTRONA [Suspect]
     Indication: EXTRANODAL MARGINAL ZONE B-CELL LYMPHOMA (MALT TYPE)
     Dosage: UNK UNK, TIW
     Route: 057
  2. INTRONA [Suspect]
     Dosage: 1.5 MILLION IU, QW
     Route: 057
  3. PROPARACAINE HYDROCHLORIDE [Suspect]
     Indication: INDUCTION OF ANAESTHESIA
     Dosage: UNK UNK, TIW
     Route: 061
  4. PROPARACAINE HYDROCHLORIDE [Suspect]
     Dosage: UNK, QW
     Route: 061

REACTIONS (3)
  - Injection site discomfort [Recovered/Resolved]
  - Decreased appetite [Recovered/Resolved]
  - Off label use [Unknown]
